FAERS Safety Report 14701130 (Version 1)
Quarter: 2018Q1

REPORT INFORMATION
  Report Type: Spontaneous
  Country: US (occurrence: US)
  Receive Date: 20180328
  Receipt Date: 20180328
  Transmission Date: 20180509
  Serious: Yes (Hospitalization)
  Sender: FDA-Public Use
  Company Number: None

PATIENT
  Age: 87 Year
  Sex: Female
  Weight: 57.15 kg

DRUGS (9)
  1. METOPROLOL SUC ER [Concomitant]
  2. METHOCARBAMOL. [Concomitant]
     Active Substance: METHOCARBAMOL
  3. SINGULAIR [Concomitant]
     Active Substance: MONTELUKAST SODIUM
  4. CRESTOR [Concomitant]
     Active Substance: ROSUVASTATIN CALCIUM
  5. NITROFURANTOIN MON 100MG (FOR MACRO BID 100MG) [Suspect]
     Active Substance: NITROFURANTOIN
     Indication: URINARY TRACT INFECTION
     Route: 048
     Dates: start: 20171211, end: 20171215
  6. NEXIUM [Concomitant]
     Active Substance: ESOMEPRAZOLE MAGNESIUM
  7. MICARDIS [Concomitant]
     Active Substance: TELMISARTAN
  8. FLORASTOR [Concomitant]
     Active Substance: SACCHAROMYCES CEREVISIAE
  9. AMLODIPINE [Concomitant]
     Active Substance: AMLODIPINE BESYLATE

REACTIONS (3)
  - Vertigo [None]
  - Drug hypersensitivity [None]
  - Hypertension [None]

NARRATIVE: CASE EVENT DATE: 20171215
